FAERS Safety Report 8393103-0 (Version None)
Quarter: 2012Q2

REPORT INFORMATION
  Report Type: 
  Country: None (occurrence: None)
  Receive Date: 20120529
  Receipt Date: 20120417
  Transmission Date: 20120825
  Serious: No
  Sender: FDA-Public Use
  Company Number: US-ABBOTT-12P-163-0927839-00

PATIENT
  Sex: Male
  Weight: 118.04 kg

DRUGS (2)
  1. ANDROGEL [Suspect]
     Indication: BLOOD TESTOSTERONE DECREASED
     Dates: start: 20120416
  2. CLONOPIN [Concomitant]
     Indication: ANXIETY

REACTIONS (5)
  - DYSPNOEA [None]
  - ERYTHEMA [None]
  - SENSORY DISTURBANCE [None]
  - CHEST DISCOMFORT [None]
  - FEELING HOT [None]
